FAERS Safety Report 23749612 (Version 1)
Quarter: 2024Q2

REPORT INFORMATION
  Report Type: Spontaneous
  Country: US (occurrence: US)
  Receive Date: 20240416
  Receipt Date: 20240416
  Transmission Date: 20240716
  Serious: Yes (Death, Other)
  Sender: FDA-Public Use
  Company Number: US-AMGEN-USASP2024072376

PATIENT
  Age: 85 Year
  Sex: Male

DRUGS (5)
  1. FILGRASTIM [Suspect]
     Active Substance: FILGRASTIM
     Indication: T-cell lymphoma
     Dosage: UNK
     Route: 065
  2. CYCLOPHOSPHAMIDE [Concomitant]
     Active Substance: CYCLOPHOSPHAMIDE
     Indication: T-cell lymphoma
     Dosage: UNK
  3. DOXORUBICIN [Concomitant]
     Active Substance: DOXORUBICIN
     Indication: T-cell lymphoma
     Dosage: UNK
  4. VINCRISTINE [Concomitant]
     Active Substance: VINCRISTINE
     Indication: T-cell lymphoma
     Dosage: UNK
  5. PREDNISOLONE [Concomitant]
     Active Substance: PREDNISOLONE
     Indication: T-cell lymphoma
     Dosage: UNK

REACTIONS (3)
  - Death [Fatal]
  - Cerebrovascular accident [Unknown]
  - Respiratory arrest [Unknown]
